FAERS Safety Report 6160838-X (Version None)
Quarter: 2009Q2

REPORT INFORMATION
  Report Type: 
  Country: None (occurrence: None)
  Receive Date: 20090420
  Receipt Date: 20090414
  Transmission Date: 20091009
  Serious: Yes (Other)
  Sender: FDA-Public Use
  Company Number: RU-ROCHE-623217

PATIENT
  Sex: Female

DRUGS (4)
  1. XELODA [Suspect]
     Route: 065
     Dates: start: 20080101
  2. AVASTIN [Suspect]
     Route: 042
     Dates: start: 20090201
  3. MITOMICINA [Suspect]
     Route: 065
     Dates: start: 20081201
  4. IRINOTECAN HCL [Concomitant]
     Dates: start: 20080429

REACTIONS (4)
  - COAGULATION TIME PROLONGED [None]
  - EPISTAXIS [None]
  - GINGIVAL BLEEDING [None]
  - THROMBOCYTOPENIA [None]
